FAERS Safety Report 6614328-8 (Version None)
Quarter: 2010Q1

REPORT INFORMATION
  Report Type: 
  Country: None (occurrence: None)
  Receive Date: 20100303
  Receipt Date: 20100303
  Transmission Date: 20100710
  Serious: Yes (Death, Hospitalization)
  Sender: FDA-Public Use
  Company Number: None

PATIENT
  Sex: Male
  Weight: 74.6 kg

DRUGS (8)
  1. CYCLOPHOSPHAMIDE [Suspect]
     Dosage: 2100 MG
     Dates: end: 20091230
  2. CYTARABINE [Suspect]
     Dosage: 1176 MG
     Dates: end: 20100108
  3. DAUNORUBICIN HCL [Suspect]
     Dosage: 212 MG
     Dates: end: 20091215
  4. MERCAPTOPURINE [Suspect]
     Dosage: 1450 MG
     Dates: end: 20100112
  5. METHOTREXATE [Suspect]
     Dosage: 495 MG
     Dates: end: 20100113
  6. PEG-L-ASPARAGINASE (K-H) [Suspect]
     Dosage: 15350 IU
     Dates: end: 20100113
  7. PREDNISONE [Suspect]
     Dosage: 2880 MG
     Dates: end: 20091221
  8. VINCRISTINE SULFATE [Suspect]
     Dosage: 10 MG
     Dates: end: 20100113

REACTIONS (22)
  - BRAIN HERNIATION [None]
  - CANDIDA SEPSIS [None]
  - CEREBRAL HAEMORRHAGE [None]
  - COAGULOPATHY [None]
  - CONFUSIONAL STATE [None]
  - CONJUNCTIVAL HAEMORRHAGE [None]
  - GASTROINTESTINAL EROSION [None]
  - HEADACHE [None]
  - HEPATIC ENZYME ABNORMAL [None]
  - HYPOTENSION [None]
  - JAUNDICE CHOLESTATIC [None]
  - MENTAL STATUS CHANGES [None]
  - MOUTH HAEMORRHAGE [None]
  - NECK PAIN [None]
  - NEUTROPENIA [None]
  - OROPHARYNGEAL PAIN [None]
  - PAIN [None]
  - PUPIL FIXED [None]
  - PYREXIA [None]
  - RECTAL HAEMORRHAGE [None]
  - VARICELLA [None]
  - VOMITING [None]
